FAERS Safety Report 6437115-2 (Version None)
Quarter: 2009Q4

REPORT INFORMATION
  Report Type: 
  Country: None (occurrence: None)
  Receive Date: 20091112
  Receipt Date: 20091104
  Transmission Date: 20100525
  Serious: No
  Sender: FDA-Public Use
  Company Number: US-B.I. PHARMACEUTICALS,INC./RIDGEFIELD-2009-BP-12859BP

PATIENT
  Age: 82 Year
  Sex: Female

DRUGS (4)
  1. SPIRIVA [Suspect]
  2. XOPENEX HFA [Suspect]
     Indication: BRONCHIECTASIS
     Dosage: 135 MCG
     Route: 055
     Dates: start: 20090912
  3. QVAR 40 [Concomitant]
  4. ZESTRIL [Concomitant]

REACTIONS (2)
  - EXTRASYSTOLES [None]
  - HEART RATE INCREASED [None]
